FAERS Safety Report 5278301-7 (Version None)
Quarter: 2007Q1

REPORT INFORMATION
  Report Type: 
  Country: None (occurrence: None)
  Receive Date: 20070328
  Receipt Date: 20070321
  Transmission Date: 20070707
  Serious: Yes (Hospitalization)
  Sender: FDA-Public Use
  Company Number: 2007UW05598

PATIENT
  Age: 58 Year
  Sex: Female
  Weight: 117.9 kg

DRUGS (12)
  1. CRESTOR [Suspect]
     Route: 048
     Dates: start: 20060901
  2. HUMALOG [Concomitant]
  3. LANTUS [Concomitant]
  4. GLUCOTROL [Concomitant]
  5. GLUCOPHAGE [Concomitant]
  6. AVAPRO [Concomitant]
  7. CARDIZEM CD [Concomitant]
  8. BUSPAR [Concomitant]
  9. LORAZEPAM [Concomitant]
  10. PROZAC [Concomitant]
  11. WELLBUTRIN [Concomitant]
  12. PAIN MEDICATION [Concomitant]

REACTIONS (2)
  - PAIN IN EXTREMITY [None]
  - ROTATOR CUFF REPAIR [None]
